FAERS Safety Report 8290099-7 (Version None)
Quarter: 2012Q2

REPORT INFORMATION
  Report Type: 
  Country: None (occurrence: None)
  Receive Date: 20120412
  Receipt Date: 20120412
  Transmission Date: 20120825
  Serious: Yes (Hospitalization)
  Sender: FDA-Public Use
  Company Number: None

PATIENT
  Sex: Male
  Weight: 125.4 kg

DRUGS (1)
  1. CISPLATIN [Suspect]
     Dosage: 408 MG, DOSE DIVIDED 204 MG DAY1 AND 204 MG DAY 22

REACTIONS (2)
  - VOMITING [None]
  - NAUSEA [None]
